FAERS Safety Report 4538838-2 (Version None)
Quarter: 2004Q4

REPORT INFORMATION
  Report Type: 
  Country: None (occurrence: None)
  Receive Date: 20041222
  Receipt Date: 20041203
  Transmission Date: 20050328
  Serious: Yes (Other)
  Sender: FDA-Public Use
  Company Number: USA040773147

PATIENT
  Age: 6 Year
  Sex: Male
  Weight: 17 kg

DRUGS (4)
  1. STRATTERA [Suspect]
     Indication: ATTENTION DEFICIT/HYPERACTIVITY DISORDER
     Dosage: 25 MG DAY
     Dates: start: 20040130
  2. ZYPREXA [Suspect]
     Indication: ABNORMAL BEHAVIOUR
     Dosage: 5 MG DAY
  3. METADATE CD [Concomitant]
  4. DDAVP (DESMOPRESSIN ACETATE) [Concomitant]

REACTIONS (14)
  - ABNORMAL BEHAVIOUR [None]
  - DRUG INEFFECTIVE [None]
  - HEADACHE [None]
  - IMPULSIVE BEHAVIOUR [None]
  - INTRAOCULAR PRESSURE TEST ABNORMAL [None]
  - MYDRIASIS [None]
  - OBSESSIVE-COMPULSIVE PERSONALITY DISORDER [None]
  - OPTIC ATROPHY [None]
  - OPTIC NERVE CUP/DISC RATIO INCREASED [None]
  - PHOTOPHOBIA [None]
  - PSYCHOMOTOR HYPERACTIVITY [None]
  - PUPILS UNEQUAL [None]
  - TARDIVE DYSKINESIA [None]
  - VISUAL FIELD DEFECT [None]
